FAERS Safety Report 25429010 (Version 2)
Quarter: 2025Q3

REPORT INFORMATION
  Report Type: Spontaneous
  Country: US (occurrence: US)
  Receive Date: 20250612
  Receipt Date: 20250829
  Transmission Date: 20251020
  Serious: Yes (Other)
  Sender: BRISTOL-MYERS SQUIBB COMPANY
  Company Number: US-BRISTOL-MYERS SQUIBB COMPANY-2025-082607

PATIENT
  Age: 64 Year
  Sex: Male

DRUGS (22)
  1. REVLIMID [Suspect]
     Active Substance: LENALIDOMIDE
     Indication: Plasma cell myeloma
     Dosage: DAILY FOR 21 DAYS
     Route: 048
     Dates: start: 20241202
  2. REVLIMID [Suspect]
     Active Substance: LENALIDOMIDE
     Dosage: DAILY FOR 21 DAYS
     Route: 048
  3. REVLIMID [Suspect]
     Active Substance: LENALIDOMIDE
     Route: 048
     Dates: start: 20241205
  4. ASPIRIN [Concomitant]
     Active Substance: ASPIRIN
     Indication: Thrombosis prophylaxis
     Dosage: TAKE 1 TABLET ONCE DAILY
     Dates: start: 20241205
  5. COREG [Concomitant]
     Active Substance: CARVEDILOL
     Indication: Hypertension
     Dosage: TAKE 1.5 TABLET BY MOUTH TWICE DAILY WITH MEALS.
     Route: 048
     Dates: start: 20130816
  6. VITAMIN D3 [Concomitant]
     Active Substance: CHOLECALCIFEROL
     Indication: Product used for unknown indication
     Dosage: TAKE 1 CAPSULE BY MOUTH ONCE DAILY.
     Route: 048
     Dates: start: 20160404
  7. FLEXERIL [Concomitant]
     Active Substance: CYCLOBENZAPRINE HYDROCHLORIDE
     Indication: Back pain
     Route: 048
     Dates: start: 20250327
  8. CARDURA [Concomitant]
     Active Substance: DOXAZOSIN MESYLATE
     Indication: Benign prostatic hyperplasia
     Dosage: 1 TABLET BY MOUTH ONCE DAILY AT BEDTIME
     Route: 048
     Dates: start: 2020, end: 20250527
  9. LANTUS SOLOSTAR [Concomitant]
     Active Substance: INSULIN GLARGINE
     Indication: Diabetes mellitus
     Route: 058
     Dates: start: 20250506, end: 20250807
  10. COZAAR [Concomitant]
     Active Substance: LOSARTAN POTASSIUM
     Indication: Hypertension
     Dosage: TAKE 1 TABLET BY MOUTH ONCE DAILY.
     Route: 048
     Dates: start: 20160429
  11. MAGNESIUM [Concomitant]
     Active Substance: MAGNESIUM
     Indication: Muscle spasms
     Dates: start: 20250807
  12. PRILOSEC [Concomitant]
     Active Substance: OMEPRAZOLE MAGNESIUM
     Indication: Gastrooesophageal reflux disease
     Dosage: TAKE 1 CAPSULE BY MOUTH ONCE DAILY
     Route: 048
     Dates: start: 20180405, end: 20250807
  13. PRILOSEC [Concomitant]
     Active Substance: OMEPRAZOLE MAGNESIUM
     Dosage: TAKE 1 CAPSULE BY MOUTH ONCE DAILY
     Route: 048
     Dates: start: 20250807
  14. POLYTRIM [Concomitant]
     Active Substance: POLYMYXIN B SULFATE\TRIMETHOPRIM SULFATE
     Indication: Conjunctivitis
     Route: 047
     Dates: start: 20250327, end: 20250403
  15. CRESTOR [Concomitant]
     Active Substance: ROSUVASTATIN CALCIUM
     Indication: Hypercholesterolaemia
     Dosage: TAKE 1 TABLET BY MOUTH DAILY AT BEDTIME.
     Route: 048
     Dates: start: 20140115
  16. VIAGRA [Concomitant]
     Active Substance: SILDENAFIL CITRATE
     Indication: Erectile dysfunction
     Route: 048
     Dates: start: 20150224
  17. JANUVIA [Concomitant]
     Active Substance: SITAGLIPTIN PHOSPHATE
     Indication: Diabetes mellitus
     Dosage: TAKE 1 TABLET BY MOUTH ONCE DAILY.
     Route: 048
     Dates: start: 20220819
  18. ALDACTONE [Concomitant]
     Active Substance: SPIRONOLACTONE
     Indication: Cardiac failure
     Dosage: TAKE 0.5 TABLET BY MOUTH ONCE DAIL
     Route: 048
     Dates: start: 20250527
  19. FLOMAX [Concomitant]
     Active Substance: TAMSULOSIN HYDROCHLORIDE
     Indication: Benign prostatic hyperplasia
     Dosage: TAKE 1 CAPSULE BY MOUTH ONCE DAILY.
     Route: 048
     Dates: start: 20150218
  20. DESYREL [Concomitant]
     Active Substance: TRAZODONE HYDROCHLORIDE
     Indication: Depression
     Dosage: TAKE 1 TABLETS BY MOUTH DAILY AT BEDTIME.
     Route: 048
     Dates: start: 20150406
  21. TYLENOL [Concomitant]
     Active Substance: ACETAMINOPHEN
     Indication: Pain
     Dates: start: 2010
  22. VALTREX [Concomitant]
     Active Substance: VALACYCLOVIR HYDROCHLORIDE
     Indication: Herpes virus infection
     Dosage: TAKE 1 TABLET BY MOUTH ONCE DAILY.
     Route: 048
     Dates: start: 20200914

REACTIONS (2)
  - Neutropenia [Recovered/Resolved]
  - Off label use [Unknown]

NARRATIVE: CASE EVENT DATE: 20250522
